FAERS Safety Report 5071295-9 (Version None)
Quarter: 2006Q3

REPORT INFORMATION
  Report Type: 
  Country: None (occurrence: None)
  Receive Date: 20060804
  Receipt Date: 20060801
  Transmission Date: 20061208
  Serious: Yes (Death)
  Sender: FDA-Public Use
  Company Number: US-BRISTOL-MYERS SQUIBB COMPANY-13462544

PATIENT
  Age: 10 Decade
  Sex: Female

DRUGS (2)
  1. COUMADIN [Suspect]
  2. PLAVIX [Suspect]

REACTIONS (1)
  - DEATH [None]
